FAERS Safety Report 18245197 (Version 2)
Quarter: 2021Q1

REPORT INFORMATION
  Report Type: Report from Study
  Country: CN (occurrence: CN)
  Receive Date: 20200908
  Receipt Date: 20210115
  Transmission Date: 20210419
  Serious: No
  Sender: FDA-Public Use
  Company Number: CN-BAXTER-2020BAX018224

PATIENT
  Sex: Female

DRUGS (2)
  1. DIANEAL [Suspect]
     Active Substance: CALCIUM CHLORIDE\DEXTROSE\MAGNESIUM CHLORIDE\SODIUM CHLORIDE\SODIUM LACTATE
     Indication: END STAGE RENAL DISEASE
     Dosage: 3.5 BAGS PER DAY IN TOTAL
     Route: 033
     Dates: start: 20190513
  2. DIANEAL [Suspect]
     Active Substance: CALCIUM CHLORIDE\DEXTROSE\MAGNESIUM CHLORIDE\SODIUM CHLORIDE\SODIUM LACTATE
     Indication: PERITONEAL DIALYSIS

REACTIONS (5)
  - Product leakage [Unknown]
  - Peritoneal dialysis complication [Recovered/Resolved]
  - Fungal infection [Recovered/Resolved]
  - Poor quality product administered [Unknown]
  - Infection [Recovered/Resolved]
